FAERS Safety Report 19433192 (Version 1)
Quarter: 2021Q2

REPORT INFORMATION
  Report Type: Spontaneous
  Country: CN (occurrence: CN)
  Receive Date: 20210617
  Receipt Date: 20210617
  Transmission Date: 20210717
  Serious: Yes (Other)
  Sender: FDA-Public Use
  Company Number: CN-PFIZER INC-2021672611

PATIENT
  Age: 31 Year
  Sex: Female
  Weight: 59.3 kg

DRUGS (1)
  1. METHOTREXATE. [Suspect]
     Active Substance: METHOTREXATE
     Indication: CHEMOTHERAPY
     Dosage: 3 G, 1X/DAY
     Route: 041
     Dates: start: 20210502, end: 20210502

REACTIONS (4)
  - Jaundice [Recovering/Resolving]
  - Renal injury [Recovering/Resolving]
  - Full blood count decreased [Recovering/Resolving]
  - Diarrhoea [Recovering/Resolving]

NARRATIVE: CASE EVENT DATE: 20210505
